FAERS Safety Report 7639786-1 (Version None)
Quarter: 2011Q3

REPORT INFORMATION
  Report Type: 
  Country: None (occurrence: None)
  Receive Date: 20110727
  Receipt Date: 20110714
  Transmission Date: 20111222
  Serious: Yes (Other)
  Sender: FDA-Public Use
  Company Number: PHHY2011DE64513

PATIENT
  Age: 44 Year
  Sex: Male

DRUGS (4)
  1. AREDIA [Suspect]
     Indication: MULTIPLE MYELOMA
     Dosage: UNK
     Route: 042
     Dates: start: 20020701, end: 20090901
  2. ZOMETA [Suspect]
     Indication: MULTIPLE MYELOMA
     Dosage: UNK
     Route: 042
     Dates: start: 20030901, end: 20040901
  3. CHEMOTHERAPEUTICS [Concomitant]
  4. CORTISONE ACETATE [Concomitant]

REACTIONS (2)
  - OSTEOMYELITIS [None]
  - ORAL DYSAESTHESIA [None]
